FAERS Safety Report 4492495-2 (Version None)
Quarter: 2004Q4

REPORT INFORMATION
  Report Type: 
  Country: None (occurrence: None)
  Receive Date: 20041103
  Receipt Date: 20041103
  Transmission Date: 20050328
  Serious: Yes (Life-Threatening, Hospitalization)
  Sender: FDA-Public Use
  Company Number: None

PATIENT
  Sex: Male
  Weight: 31.5704 kg

DRUGS (1)
  1. DESFLURANE [Suspect]
     Indication: SEDATIVE THERAPY
     Dosage: 2% THEN 1%

REACTIONS (4)
  - EXTRASYSTOLES [None]
  - HEART RATE DECREASED [None]
  - HYPOTENSION [None]
  - SUPRAVENTRICULAR TACHYCARDIA [None]
